FAERS Safety Report 18972427 (Version 1)
Quarter: 2021Q1

REPORT INFORMATION
  Report Type: Spontaneous
  Country: US (occurrence: US)
  Receive Date: 20210304
  Receipt Date: 20210304
  Transmission Date: 20210420
  Serious: Yes (Other)
  Sender: FDA-Public Use
  Company Number: None

PATIENT
  Sex: Female

DRUGS (20)
  1. VOLTAREN [Concomitant]
     Active Substance: DICLOFENAC SODIUM
  2. DYMISTA [Concomitant]
     Active Substance: AZELASTINE HYDROCHLORIDE\FLUTICASONE PROPIONATE
  3. BENADRYL [Concomitant]
     Active Substance: DIPHENHYDRAMINE HYDROCHLORIDE
  4. XARELTO [Concomitant]
     Active Substance: RIVAROXABAN
  5. ONZETRA [Concomitant]
     Active Substance: SUMATRIPTAN SUCCINATE
  6. PROMETH [Concomitant]
     Active Substance: PROMETHAZINE HYDROCHLORIDE
  7. PRILOS [Concomitant]
  8. CYMBALTA [Concomitant]
     Active Substance: DULOXETINE HYDROCHLORIDE
  9. DILTIAZ [Concomitant]
     Active Substance: DILTIAZEM HYDROCHLORIDE
  10. REMERON [Concomitant]
     Active Substance: MIRTAZAPINE
  11. ZEMBRACE SYMTOUCH [Concomitant]
     Active Substance: SUMATRIPTAN SUCCINATE
  12. ZOFRAN [Concomitant]
     Active Substance: ONDANSETRON HYDROCHLORIDE
  13. BOTOX [Suspect]
     Active Substance: ONABOTULINUMTOXINA
     Indication: MIGRAINE
     Dosage: ?          OTHER FREQUENCY:EVERY 12 WKS;?
     Route: 030
     Dates: start: 20181009
  14. ACYCLOVIR. [Concomitant]
     Active Substance: ACYCLOVIR
  15. LUNESTA [Concomitant]
     Active Substance: ESZOPICLONE
  16. SYNTHR [Concomitant]
  17. DRAMAMINE [Concomitant]
     Active Substance: DIMENHYDRINATE
  18. FLECAINIDE [Concomitant]
     Active Substance: FLECAINIDE
  19. SUMATRIP [Concomitant]
  20. METOPROLOL TARTRATE. [Concomitant]
     Active Substance: METOPROLOL TARTRATE

REACTIONS (1)
  - Breast cancer [None]
